FAERS Safety Report 12094422 (Version 2)
Quarter: 2016Q1

REPORT INFORMATION
  Report Type: Report from Study
  Country: US (occurrence: US)
  Receive Date: 20160219
  Receipt Date: 20160311
  Transmission Date: 20160526
  Serious: Yes (Other)
  Sender: FDA-Public Use
  Company Number: US-BAXALTA-2016BLT000795

PATIENT
  Age: 50 Year
  Sex: Female
  Weight: 72 kg

DRUGS (5)
  1. TYLENOL [Concomitant]
     Active Substance: ACETAMINOPHEN
     Indication: PREMEDICATION
     Dosage: UNK, 2 TABS 30 MINS PRIOR TO HYQVIA THERAPY
     Route: 048
     Dates: start: 20160128
  2. HYQVIA [Suspect]
     Active Substance: HUMAN IMMUNOGLOBULIN G\HYALURONIDASE RECOMBINANT HUMAN
     Indication: HYPOGAMMAGLOBULINAEMIA
     Dosage: 30 G, UNK, 3RD RAMP UP DOSE
     Route: 058
     Dates: start: 20160219
  3. HYQVIA [Suspect]
     Active Substance: HUMAN IMMUNOGLOBULIN G\HYALURONIDASE RECOMBINANT HUMAN
     Indication: PRIMARY IMMUNODEFICIENCY SYNDROME
     Dosage: 20 G, UNK, 2ND RAMP UP DOSE
     Route: 058
     Dates: start: 20160205
  4. GAMMAGARD [Concomitant]
     Active Substance: HUMAN IMMUNOGLOBULIN G
     Indication: PRIMARY IMMUNODEFICIENCY SYNDROME
     Dosage: UNK
     Route: 058
  5. BENADRYL [Concomitant]
     Active Substance: DIPHENHYDRAMINE HYDROCHLORIDE
     Indication: PREMEDICATION
     Dosage: UNK, 1-2 TABS 30 MINS PRIOR TO HYQVIA THERAPY
     Route: 048
     Dates: start: 20160128

REACTIONS (11)
  - Immunoglobulins decreased [Unknown]
  - Chest pain [Recovered/Resolved]
  - Ear infection [Recovering/Resolving]
  - Nasopharyngitis [Recovering/Resolving]
  - Blood pressure increased [Recovered/Resolved]
  - Sinusitis [Recovering/Resolving]
  - Pharyngitis streptococcal [Recovering/Resolving]
  - Feeling abnormal [Recovering/Resolving]
  - Eye swelling [Recovering/Resolving]
  - Influenza [Recovering/Resolving]
  - Hypersensitivity [Recovering/Resolving]

NARRATIVE: CASE EVENT DATE: 201602
